FAERS Safety Report 11495998 (Version 2)
Quarter: 2015Q4

REPORT INFORMATION
  Report Type: Spontaneous
  Country: US (occurrence: US)
  Receive Date: 20150911
  Receipt Date: 20151014
  Transmission Date: 20160304
  Serious: Yes (Hospitalization, Other)
  Sender: FDA-Public Use
  Company Number: US-ASTELLAS-2015US028850

PATIENT
  Age: 81 Year
  Sex: Female

DRUGS (1)
  1. LEXISCAN [Suspect]
     Active Substance: REGADENOSON
     Indication: SCAN MYOCARDIAL PERFUSION
     Dosage: UNK UNK, UNKNOWN FREQ.
     Route: 065
     Dates: start: 201508, end: 201508

REACTIONS (6)
  - Glassy eyes [Recovered/Resolved]
  - Atrial fibrillation [Unknown]
  - Confusional state [Not Recovered/Not Resolved]
  - Bundle branch block right [Unknown]
  - Speech disorder [Recovering/Resolving]
  - Unresponsive to stimuli [Unknown]

NARRATIVE: CASE EVENT DATE: 201508
